FAERS Safety Report 5201076-4 (Version None)
Quarter: 2007Q1

REPORT INFORMATION
  Report Type: 
  Country: None (occurrence: None)
  Receive Date: 20070108
  Receipt Date: 20070103
  Transmission Date: 20070707
  Serious: Yes (Hospitalization, Other)
  Sender: FDA-Public Use
  Company Number: US-ELI_LILLY_AND_COMPANY-US200609005646

PATIENT
  Age: 26 Year
  Sex: Female
  Weight: 77.097 kg

DRUGS (10)
  1. SEROQUEL [Concomitant]
     Dates: start: 20021101
  2. HALDOL [Concomitant]
     Dates: start: 20060901
  3. DEPAKOTE [Concomitant]
     Dates: start: 20060801
  4. PROZAC [Concomitant]
     Dates: start: 20060801
  5. EFFEXOR [Concomitant]
     Dates: start: 20060301
  6. GLUCOTROL [Concomitant]
     Indication: DIABETES MELLITUS
     Dates: start: 20040601
  7. INSULIN [Concomitant]
     Indication: DIABETES MELLITUS
     Dates: start: 20040801
  8. GLUCOPHAGE [Concomitant]
     Indication: DIABETES MELLITUS
     Dates: start: 19990210
  9. ACTOS [Concomitant]
     Indication: DIABETES MELLITUS
     Dates: start: 20040601
  10. ZYPREXA [Suspect]
     Indication: BIPOLAR DISORDER
     Dosage: 5 MG, UNK
     Dates: start: 20020101

REACTIONS (12)
  - ACETONAEMIA [None]
  - BLOOD CHOLESTEROL INCREASED [None]
  - DIABETES COMPLICATING PREGNANCY [None]
  - DIABETES MELLITUS [None]
  - DIABETIC COMA [None]
  - DIABETIC KETOACIDOSIS [None]
  - DRUG EXPOSURE DURING PREGNANCY [None]
  - HYPERGLYCAEMIC HYPEROSMOLAR NONKETOTIC SYNDROME [None]
  - KETOACIDOSIS [None]
  - KETONURIA [None]
  - METABOLIC DISORDER [None]
  - VISION BLURRED [None]
